FAERS Safety Report 18489009 (Version 4)
Quarter: 2020Q4

REPORT INFORMATION
  Report Type: Report from Study
  Country: None (occurrence: CH)
  Receive Date: 20201110
  Receipt Date: 20201129
  Transmission Date: 20210114
  Serious: Yes (Hospitalization)
  Sender: FDA-Public Use
  Company Number: CH-ABBVIE-20K-151-3644502-00

PATIENT
  Age: 72 Year
  Sex: Female
  Weight: 56 kg

DRUGS (15)
  1. PANTOPRAZOL SANDOZ [Concomitant]
     Active Substance: PANTOPRAZOLE SODIUM
     Indication: PRODUCT USED FOR UNKNOWN INDICATION
     Dosage: DAILY, IN THE EVENING
     Route: 048
     Dates: start: 20180602
  2. MIRTAZAPINUM [Concomitant]
     Active Substance: MIRTAZAPINE
     Indication: PRODUCT USED FOR UNKNOWN INDICATION
     Dosage: DAILY, AT 10 P.M.
     Route: 048
     Dates: start: 20200501
  3. DUODOPA [Suspect]
     Active Substance: CARBIDOPA\LEVODOPA
     Dosage: MD: 3 ML, CRD: 4.3 ML/H, CRN: 2.2ML/H, ED:1.5 ML, ED BLOCKING TIME: 1 H, LL: LOCK LEVEL 0
     Route: 050
     Dates: start: 20201113, end: 20201123
  4. TOLPERISONI HYDROCHLORIDUM [Concomitant]
     Indication: PRODUCT USED FOR UNKNOWN INDICATION
     Dosage: DAILY, IN THE EVENING
     Route: 048
     Dates: start: 20200629
  5. METAMIZOL [Concomitant]
     Active Substance: METAMIZOLE SODIUM
     Indication: PRODUCT USED FOR UNKNOWN INDICATION
     Dosage: 4 TIMES DAILY, 2 TABLETS
     Route: 048
     Dates: start: 20201111
  6. ZOLPIDEMI TARTRAS [Concomitant]
     Indication: PRODUCT USED FOR UNKNOWN INDICATION
     Dosage: DAILY AT 10 P.M.
     Dates: start: 20201111
  7. DUODOPA [Suspect]
     Active Substance: CARBIDOPA\LEVODOPA
     Dosage: MD: 3 ML, CRD: 4.5 ML/H, CRN: 2.5 ML/H, ED: 1.5 ML, 24 H THERAPY
     Route: 050
     Dates: start: 20180303, end: 20201113
  8. DUODOPA [Suspect]
     Active Substance: CARBIDOPA\LEVODOPA
     Dosage: MD:3ML,CRD:4.3ML/H,CRN:2.2ML/H, ED:1.5ML, ED BLOCKING TIME:3H, LL:LOCK LEVEL 0,24H THERAPY
     Route: 050
     Dates: start: 20201123
  9. BECOZYME C FORTE [Concomitant]
     Active Substance: ASCORBIC ACID\BIOTIN\CALCIUM PANTOTHENATE\CYANOCOBALAMIN\FOLIC ACID\NIACINAMIDE\PYRIDOXINE HYDROCHLORIDE\RIBOFLAVIN\THIAMINE HYDROCHLORIDE
     Indication: PRODUCT USED FOR UNKNOWN INDICATION
     Dosage: DAILY, IN THE MORNING
     Route: 048
     Dates: start: 20180824
  10. QUETIAPINUM [Concomitant]
     Indication: PRODUCT USED FOR UNKNOWN INDICATION
     Dosage: DAILY, AT 10 P.M.
     Route: 048
     Dates: start: 20200501, end: 2020
  11. ACIDUM FOLICUM [Concomitant]
     Active Substance: FOLIC ACID
     Indication: PRODUCT USED FOR UNKNOWN INDICATION
     Dosage: DAILY, IN THE MORNING
     Route: 048
     Dates: start: 20201111
  12. TEBOKAN [Concomitant]
     Active Substance: GINKGO
     Indication: PRODUCT USED FOR UNKNOWN INDICATION
     Dosage: DAILY IN THE MORNING
     Route: 048
  13. DUODOPA [Suspect]
     Active Substance: CARBIDOPA\LEVODOPA
     Indication: PARKINSON^S DISEASE
     Route: 050
     Dates: start: 20180131, end: 20180303
  14. VITAMIN D3 SANDOZ [Concomitant]
     Indication: PRODUCT USED FOR UNKNOWN INDICATION
     Dosage: DAILY AT NOON
     Route: 048
     Dates: start: 20200324
  15. QUETIAPINUM [Concomitant]
     Dosage: DAILY, AT 10 P.M.
     Route: 048
     Dates: start: 20201111

REACTIONS (7)
  - Device dislocation [Recovered/Resolved]
  - Dyskinesia [Not Recovered/Not Resolved]
  - Extra dose administered [Unknown]
  - Weight decreased [Recovered/Resolved]
  - Gastrointestinal disorder [Recovered/Resolved]
  - Dementia [Not Recovered/Not Resolved]
  - Abdominal pain [Recovered/Resolved]

NARRATIVE: CASE EVENT DATE: 202011
